FAERS Safety Report 14425771 (Version 10)
Quarter: 2021Q1

REPORT INFORMATION
  Report Type: Spontaneous
  Country: ES (occurrence: ES)
  Receive Date: 20180123
  Receipt Date: 20210105
  Transmission Date: 20210419
  Serious: Yes (Hospitalization, Other)
  Sender: FDA-Public Use
  Company Number: PHHY2017ES199283

PATIENT
  Age: 87 Year
  Sex: Male
  Weight: 87 kg

DRUGS (59)
  1. METAMIZOLE SODIUM [Suspect]
     Active Substance: METAMIZOLE SODIUM
     Indication: PRODUCT USED FOR UNKNOWN INDICATION
     Dosage: 1 ?G/L, QD
     Route: 042
     Dates: start: 20170801
  2. STELARA [Suspect]
     Active Substance: USTEKINUMAB
     Indication: PSORIASIS
     Dosage: 45 MG, BID
     Route: 058
     Dates: start: 20170803, end: 20170803
  3. ACITRETIN. [Concomitant]
     Active Substance: ACITRETIN
     Indication: PRODUCT USED FOR UNKNOWN INDICATION
     Dosage: 25 MG,QD
     Route: 065
     Dates: start: 20170728
  4. SEGURIL [Concomitant]
     Active Substance: FUROSEMIDE
     Indication: PRODUCT USED FOR UNKNOWN INDICATION
     Dosage: 60 MG,QD
     Route: 065
     Dates: start: 20170802
  5. JUNIPER OIL [Concomitant]
     Active Substance: HERBALS\JUNIPERUS COMMUNIS WHOLE
     Indication: PRODUCT USED FOR UNKNOWN INDICATION
     Dosage: UNK, QD (BATHROOMS WITH JUNIPER OIL ONCE A DAY FOR 20 MINUTES)
     Route: 065
  6. BETAMETHASONE. [Concomitant]
     Active Substance: BETAMETHASONE
     Indication: PRODUCT USED FOR UNKNOWN INDICATION
     Dosage: 1 ?G/L, Q12H
     Route: 065
     Dates: start: 201704
  7. BRETARIS GENUAIR [Concomitant]
     Active Substance: ACLIDINIUM BROMIDE
     Indication: PRODUCT USED FOR UNKNOWN INDICATION
     Dosage: 1 ?G/L, Q12H
     Route: 055
  8. MONOLITUM [Concomitant]
     Active Substance: LANSOPRAZOLE
     Dosage: 30 MG, UNK
     Route: 065
     Dates: start: 20170401
  9. DIPROGENTA [Concomitant]
     Active Substance: BETAMETHASONE DIPROPIONATE\GENTAMICIN SULFATE
     Indication: PRODUCT USED FOR UNKNOWN INDICATION
     Dosage: 1 DF, Q12H
     Route: 061
  10. ACICLOVIR [Suspect]
     Active Substance: ACYCLOVIR
     Dosage: 45 MG,UNK
     Route: 058
  11. JUNIPER OIL [Concomitant]
     Active Substance: HERBALS\JUNIPERUS COMMUNIS WHOLE
     Dosage: 1 ?G/L, QD
     Route: 065
  12. ALDACTONE [Concomitant]
     Active Substance: SPIRONOLACTONE
     Indication: PRODUCT USED FOR UNKNOWN INDICATION
     Dosage: 25 MG, QD
     Route: 065
     Dates: end: 20170802
  13. SALMETEROL [Concomitant]
     Active Substance: SALMETEROL
     Dosage: UNK UNK,Q12H
     Route: 055
  14. BETAMETHASONE. [Concomitant]
     Active Substance: BETAMETHASONE
     Dosage: 1 DF,Q12H
     Route: 065
     Dates: start: 201704
  15. EUCERIN [Concomitant]
     Active Substance: ENSULIZOLE\EUCERIN\OCTINOXATE\OCTISALATE\TITANIUM DIOXIDE\ZINC OXIDE
     Indication: PRODUCT USED FOR UNKNOWN INDICATION
     Dosage: UNK MG
     Route: 065
  16. ACICLOVIR [Suspect]
     Active Substance: ACYCLOVIR
     Indication: ERYTHRODERMIC PSORIASIS
     Dosage: 1200 MG, QD
     Route: 042
     Dates: start: 20170810
  17. CEFTRIAXONE. [Suspect]
     Active Substance: CEFTRIAXONE
     Indication: PRODUCT USED FOR UNKNOWN INDICATION
     Dosage: 500 MG, QD
     Route: 030
     Dates: start: 20170801, end: 20170812
  18. NEOTIGASON [Suspect]
     Active Substance: ACITRETIN
     Indication: ERYTHRODERMIC PSORIASIS
     Dosage: 50 MG, QD
     Route: 065
     Dates: start: 20170728, end: 20170728
  19. LISALGIL [Suspect]
     Active Substance: METAMIZOLE SODIUM
     Indication: PRODUCT USED FOR UNKNOWN INDICATION
     Dosage: 1 DF, Q8H
     Route: 042
     Dates: start: 201708
  20. AUXINA A+E [Concomitant]
     Active Substance: RETINOL\TOCOPHEROL
     Indication: PRODUCT USED FOR UNKNOWN INDICATION
     Dosage: 1 ?G/L, QD
     Route: 048
     Dates: start: 201704, end: 20170726
  21. AUXINA A+E [Concomitant]
     Active Substance: RETINOL\TOCOPHEROL
     Dosage: 1 DF,UNK
     Route: 048
     Dates: start: 201704, end: 20170726
  22. JUNIPER OIL [Concomitant]
     Active Substance: HERBALS\JUNIPERUS COMMUNIS WHOLE
     Dosage: 1 DF,QD
     Route: 065
  23. BILAXTEN [Concomitant]
     Active Substance: BILASTINE
     Indication: PRODUCT USED FOR UNKNOWN INDICATION
     Dosage: 20 MG,QD
     Route: 048
     Dates: start: 20170726
  24. SIMVASTATIN. [Concomitant]
     Active Substance: SIMVASTATIN
     Dosage: 20 MG,QD
     Route: 065
  25. BRETARIS GENUAIR [Concomitant]
     Active Substance: ACLIDINIUM BROMIDE
     Dosage: UNK, QD
     Route: 055
  26. DIPROGENTA [Concomitant]
     Active Substance: BETAMETHASONE DIPROPIONATE\GENTAMICIN SULFATE
     Dosage: 1 DF, QD (CREAM)
     Route: 061
  27. AZITHROMYCIN ANHYDROUS. [Concomitant]
     Active Substance: AZITHROMYCIN ANHYDROUS
     Dosage: UNK
     Route: 065
     Dates: start: 20170812
  28. ALLOPURINOL. [Suspect]
     Active Substance: ALLOPURINOL
     Dosage: UNK
     Route: 065
     Dates: start: 20110101
  29. BILAXTEN [Concomitant]
     Active Substance: BILASTINE
     Dosage: 40 MG, QD
     Route: 065
     Dates: start: 20170726
  30. LORATADINE. [Concomitant]
     Active Substance: LORATADINE
     Indication: PRODUCT USED FOR UNKNOWN INDICATION
     Dosage: 10 MG,QD
     Route: 048
     Dates: start: 20170726
  31. AZITHROMYCIN ANHYDROUS. [Concomitant]
     Active Substance: AZITHROMYCIN ANHYDROUS
     Indication: PRODUCT USED FOR UNKNOWN INDICATION
     Dosage: UNK
     Route: 065
  32. FLUCONAZOLE. [Suspect]
     Active Substance: FLUCONAZOLE
     Indication: PRODUCT USED FOR UNKNOWN INDICATION
     Dosage: 200 MG,QD
     Route: 042
     Dates: start: 20170810
  33. ALLOPURINOL. [Suspect]
     Active Substance: ALLOPURINOL
     Indication: HYPERURICAEMIA
     Dosage: UNK  (ON ALLOPURINOL FOR 6 YEARS)
     Route: 065
  34. NEOTIGASON [Suspect]
     Active Substance: ACITRETIN
     Dosage: 25 MG, QD
     Route: 065
     Dates: start: 20170728, end: 20170728
  35. NOLOTIL (METAMIZOLE MAGNESIUM) [Suspect]
     Active Substance: METAMIZOLE MAGNESIUM
     Indication: PRODUCT USED FOR UNKNOWN INDICATION
     Dosage: UNK UNK, Q8H (LISALGIL)
     Route: 042
     Dates: start: 20170801
  36. OMNIC OCAS [Concomitant]
     Active Substance: TAMSULOSIN HYDROCHLORIDE
     Indication: PRODUCT USED FOR UNKNOWN INDICATION
     Dosage: 1 ?G/L, QD
     Route: 065
  37. LORATADINE. [Concomitant]
     Active Substance: LORATADINE
     Dosage: 30 MG, UNK
     Route: 048
     Dates: start: 20170726
  38. SIMVASTATIN. [Concomitant]
     Active Substance: SIMVASTATIN
     Indication: PRODUCT USED FOR UNKNOWN INDICATION
     Dosage: 20 MG, QD (24 HOURS)
     Route: 065
  39. SALMETEROL [Concomitant]
     Active Substance: SALMETEROL
     Indication: PRODUCT USED FOR UNKNOWN INDICATION
     Dosage: 1 ?G/L, Q12H (SEREVENT ACCUHALER)
     Route: 055
  40. DACORTIN [Concomitant]
     Active Substance: PREDNISONE
     Indication: PRODUCT USED FOR UNKNOWN INDICATION
     Dosage: 5 MG,QD
     Route: 065
     Dates: start: 20170801
  41. MONOLITUM [Concomitant]
     Active Substance: LANSOPRAZOLE
     Indication: PRODUCT USED FOR UNKNOWN INDICATION
     Dosage: 30 MG,QD
     Route: 065
  42. DIPROGENTA [Concomitant]
     Active Substance: BETAMETHASONE DIPROPIONATE\GENTAMICIN SULFATE
     Dosage: 1 DF, BID
     Route: 061
  43. DIPROGENTA [Concomitant]
     Active Substance: BETAMETHASONE DIPROPIONATE\GENTAMICIN SULFATE
     Dosage: 2 DF, UNK
     Route: 061
  44. ACICLOVIR [Suspect]
     Active Substance: ACYCLOVIR
     Dosage: 45 MG, QD
     Route: 042
     Dates: start: 20170810
  45. ACICLOVIR [Suspect]
     Active Substance: ACYCLOVIR
     Dosage: 400 MG,Q8H
     Route: 042
     Dates: start: 20170810
  46. STELARA [Suspect]
     Active Substance: USTEKINUMAB
     Indication: ERYTHRODERMIC PSORIASIS
     Dosage: 45 MG, QD
     Route: 058
     Dates: start: 20170803, end: 20170803
  47. BILAXTEN [Concomitant]
     Active Substance: BILASTINE
     Dosage: 20 MG, QD
     Route: 065
     Dates: start: 20170727
  48. ENALAPRIL [Concomitant]
     Active Substance: ENALAPRIL
     Dosage: 5 MG,QD
     Route: 065
  49. PARACETAMOL [Concomitant]
     Active Substance: ACETAMINOPHEN
     Dosage: 650 MG,Q12H
     Route: 065
  50. MONOLITUM [Concomitant]
     Active Substance: LANSOPRAZOLE
     Dosage: 30 MG,QD
     Route: 065
  51. ACICLOVIR [Suspect]
     Active Substance: ACYCLOVIR
     Dosage: 1200 MG, QD
     Route: 042
     Dates: start: 20170810
  52. OMNIC OCAS [Concomitant]
     Active Substance: TAMSULOSIN HYDROCHLORIDE
     Dosage: UNK UNK,UNK
     Route: 065
  53. ENALAPRIL [Concomitant]
     Active Substance: ENALAPRIL
     Indication: PRODUCT USED FOR UNKNOWN INDICATION
     Dosage: 5 MG, QD
     Route: 065
  54. ZYLORIC [Concomitant]
     Active Substance: ALLOPURINOL
     Indication: PRODUCT USED FOR UNKNOWN INDICATION
     Dosage: 100 MG, QD
     Route: 065
  55. ZYLORIC [Concomitant]
     Active Substance: ALLOPURINOL
     Dosage: 100 MG,QD
     Route: 065
  56. BRETARIS GENUAIR [Concomitant]
     Active Substance: ACLIDINIUM BROMIDE
     Dosage: 1 DF,Q12H
     Route: 055
  57. SPIRONOLACTONE. [Concomitant]
     Active Substance: SPIRONOLACTONE
     Indication: PRODUCT USED FOR UNKNOWN INDICATION
     Dosage: 25 MG,QD
     Route: 065
     Dates: start: 20170802
  58. PARACETAMOL [Concomitant]
     Active Substance: ACETAMINOPHEN
     Indication: PRODUCT USED FOR UNKNOWN INDICATION
     Dosage: 650 MG, BID (650MG, Q12H)
     Route: 065
  59. DIPROGENTA [Concomitant]
     Active Substance: BETAMETHASONE DIPROPIONATE\GENTAMICIN SULFATE
     Dosage: UNK UNK,Q12H
     Route: 061

REACTIONS (3)
  - Toxic epidermal necrolysis [Recovered/Resolved]
  - Fungal infection [Recovering/Resolving]
  - Oral candidiasis [Recovering/Resolving]

NARRATIVE: CASE EVENT DATE: 2017
